FAERS Safety Report 17774361 (Version 1)
Quarter: 2020Q2

REPORT INFORMATION
  Report Type: Spontaneous
  Country: US (occurrence: US)
  Receive Date: 20200512
  Receipt Date: 20200512
  Transmission Date: 20200714
  Serious: No
  Sender: FDA-Public Use
  Company Number: None

PATIENT
  Age: 54 Year
  Sex: Female

DRUGS (1)
  1. KISQALI [Suspect]
     Active Substance: RIBOCICLIB
     Indication: BREAST CANCER FEMALE
     Route: 048
     Dates: start: 202001, end: 20200512

REACTIONS (4)
  - Drug ineffective [None]
  - Skin exfoliation [None]
  - Skin discolouration [None]
  - Dry skin [None]

NARRATIVE: CASE EVENT DATE: 20200512
